FAERS Safety Report 24938330 (Version 2)
Quarter: 2025Q1

REPORT INFORMATION
  Report Type: Spontaneous
  Country: US (occurrence: US)
  Receive Date: 20250206
  Receipt Date: 20250219
  Transmission Date: 20250409
  Serious: Yes (Death, Other)
  Sender: IMMUNOCORE
  Company Number: US-IMMUNOCORE, LTD-2025-IMC-003622

PATIENT
  Age: 64 Year
  Sex: Female

DRUGS (1)
  1. TEBENTAFUSP [Suspect]
     Active Substance: TEBENTAFUSP
     Indication: Uveal melanoma
     Dates: start: 202207, end: 202211

REACTIONS (5)
  - Disease progression [Fatal]
  - Subretinal fluid [Unknown]
  - Cytokine release syndrome [Unknown]
  - Erythema [Unknown]
  - Pruritus [Unknown]

NARRATIVE: CASE EVENT DATE: 20221101
